FAERS Safety Report 5101437-8 (Version None)
Quarter: 2006Q3

REPORT INFORMATION
  Report Type: 
  Country: None (occurrence: None)
  Receive Date: 20060911
  Receipt Date: 20060901
  Transmission Date: 20061208
  Serious: Yes (Other)
  Sender: FDA-Public Use
  Company Number: IT-GLAXOSMITHKLINE-B0437462A

PATIENT
  Age: 51 Year
  Sex: Female

DRUGS (2)
  1. AVANDAMET [Suspect]
     Dosage: 1004MG TWICE PER DAY
     Route: 048
     Dates: start: 20060213, end: 20060522
  2. ZOFENOPRIL [Concomitant]
     Dosage: 30MG PER DAY
     Route: 048
     Dates: start: 20030116, end: 20060522

REACTIONS (1)
  - MYALGIA [None]
